FAERS Safety Report 5079325-5 (Version None)
Quarter: 2006Q3

REPORT INFORMATION
  Report Type: 
  Country: None (occurrence: None)
  Receive Date: 20060720
  Receipt Date: 20050705
  Transmission Date: 20061208
  Serious: Yes (Hospitalization, Disabling)
  Sender: FDA-Public Use
  Company Number: 2005100545

PATIENT
  Age: 45 Year
  Sex: Male

DRUGS (7)
  1. CELEBREX [Suspect]
     Indication: ILL-DEFINED DISORDER
     Dosage: 200 MG, 1 D
     Dates: start: 20000722
  2. HYDROCODONE (HYDROCODONE) [Concomitant]
  3. CYCLOBENZAPRINE HCL [Concomitant]
  4. PROPRANOLOL [Concomitant]
  5. MECLIZINE [Concomitant]
  6. ZOLOFT [Concomitant]
  7. SEROQUEL [Concomitant]

REACTIONS (1)
  - CEREBROVASCULAR ACCIDENT [None]
